FAERS Safety Report 4969163-3 (Version None)
Quarter: 2006Q2

REPORT INFORMATION
  Report Type: 
  Country: None (occurrence: None)
  Receive Date: 20060411
  Receipt Date: 20051021
  Transmission Date: 20061013
  Serious: No
  Sender: FDA-Public Use
  Company Number: US-BRISTOL-MYERS SQUIBB COMPANY-13155387

PATIENT

DRUGS (1)
  1. CARBOPLATIN [Suspect]

REACTIONS (1)
  - FLUSHING [None]
